FAERS Safety Report 6028808-X (Version None)
Quarter: 2009Q1

REPORT INFORMATION
  Report Type: 
  Country: None (occurrence: None)
  Receive Date: 20090106
  Receipt Date: 20081222
  Transmission Date: 20090719
  Serious: Yes (Death)
  Sender: FDA-Public Use
  Company Number: JP-GENENTECH-274566

PATIENT
  Age: 67 Year
  Sex: Male
  Weight: 67 kg

DRUGS (10)
  1. AVASTIN [Suspect]
     Indication: COLON CANCER
     Dosage: 5 MG/KG, Q2W
     Route: 041
     Dates: start: 20080609, end: 20081031
  2. IRINOTECAN HCL [Suspect]
     Indication: COLON CANCER
     Dosage: 100 MG, Q2W
     Route: 041
     Dates: start: 20080609, end: 20081031
  3. FLUOROURACIL [Suspect]
     Indication: COLON CANCER
     Dosage: 500 MG, Q2W
     Route: 042
     Dates: start: 20080609, end: 20081101
  4. CALCIUM LEVOFOLINATE [Suspect]
     Indication: COLON CANCER
     Dosage: 300 MG, Q2W
     Route: 041
     Dates: start: 20080609, end: 20081031
  5. INSULIN [Concomitant]
     Indication: DRUG USE FOR UNKNOWN INDICATION
     Dosage: 56 UNIT, QD
  6. FLUVASTATIN SODIUM [Concomitant]
     Indication: DRUG USE FOR UNKNOWN INDICATION
  7. NICORANDIL [Concomitant]
     Indication: DRUG USE FOR UNKNOWN INDICATION
  8. ASPIRIN [Concomitant]
     Indication: DRUG USE FOR UNKNOWN INDICATION
  9. TORSEMIDE [Concomitant]
     Indication: DRUG USE FOR UNKNOWN INDICATION
  10. ZYLORIC [Concomitant]
     Indication: DRUG USE FOR UNKNOWN INDICATION

REACTIONS (1)
  - CARDIAC FAILURE [None]
